FAERS Safety Report 12737610 (Version 3)
Quarter: 2016Q3

REPORT INFORMATION
  Report Type: Report from Study
  Country: DE (occurrence: DE)
  Receive Date: 20160912
  Receipt Date: 20160930
  Transmission Date: 20161109
  Serious: Yes (Other)
  Sender: FDA-Public Use
  Company Number: DE-TEVA-690758ROM

PATIENT
  Age: 64 Year
  Sex: Male
  Weight: 100 kg

DRUGS (17)
  1. ACICLOVIR [Concomitant]
     Active Substance: ACYCLOVIR
     Dates: start: 20160911, end: 20160912
  2. CICLOSPORIN A [Concomitant]
     Active Substance: CYCLOSPORINE
     Dosage: 300 MILLIGRAM DAILY;
     Dates: start: 20160811, end: 20160812
  3. CICLOSPORIN A [Concomitant]
     Active Substance: CYCLOSPORINE
     Dosage: 80 MILLIGRAM DAILY;
     Dates: start: 20160816, end: 20160816
  4. METOPROLOL. [Concomitant]
     Active Substance: METOPROLOL
     Dosage: 23.75 MILLIGRAM DAILY;
     Dates: start: 20160815
  5. CICLOSPORIN A [Concomitant]
     Active Substance: CYCLOSPORINE
     Dosage: 80 MILLIGRAM DAILY;
     Dates: start: 20160815, end: 20160815
  6. FLUDARABINE [Suspect]
     Active Substance: FLUDARABINE PHOSPHATE
     Indication: ACUTE MYELOID LEUKAEMIA RECURRENT
     Route: 041
     Dates: start: 20160804, end: 20160806
  7. CICLOSPORIN A [Concomitant]
     Active Substance: CYCLOSPORINE
     Dosage: 70 MILLIGRAM DAILY;
     Dates: start: 20160815, end: 20160815
  8. CICLOSPORIN A [Concomitant]
     Active Substance: CYCLOSPORINE
     Dosage: 50 MILLIGRAM DAILY;
     Dates: start: 20160817, end: 20160818
  9. CICLOSPORIN A [Concomitant]
     Active Substance: CYCLOSPORINE
     Dosage: 160 MILLIGRAM DAILY;
     Dates: start: 20160813, end: 20160813
  10. TIGECYCLINE. [Concomitant]
     Active Substance: TIGECYCLINE
     Dosage: 50 MILLIGRAM DAILY;
     Dates: start: 20160812, end: 20160812
  11. OVASTAT [Suspect]
     Active Substance: TREOSULFAN
     Indication: ACUTE MYELOID LEUKAEMIA RECURRENT
     Dosage: 22 GRAM DAILY;
     Route: 041
     Dates: start: 20160807, end: 20160809
  12. MYCOPHENOLATE MOFETIL. [Concomitant]
     Active Substance: MYCOPHENOLATE MOFETIL
     Dosage: 2000 MILLIGRAM DAILY;
     Dates: start: 20160813
  13. TEPADINA [Suspect]
     Active Substance: THIOTEPA
     Indication: ACUTE MYELOID LEUKAEMIA RECURRENT
     Dosage: 500 MILLIGRAM DAILY;
     Route: 041
     Dates: start: 20160804, end: 20160806
  14. ACICLOVIR [Concomitant]
     Active Substance: ACYCLOVIR
     Dates: start: 20160815
  15. TIGECYCLINE. [Concomitant]
     Active Substance: TIGECYCLINE
     Dosage: 100 MILLIGRAM DAILY;
     Dates: start: 20160812, end: 20160812
  16. TIGECYCLINE. [Concomitant]
     Active Substance: TIGECYCLINE
     Dosage: 100 MILLIGRAM DAILY;
     Dates: start: 20160813
  17. CICLOSPORIN A [Concomitant]
     Active Substance: CYCLOSPORINE
     Dosage: 60 MILLIGRAM DAILY;
     Dates: start: 20160817, end: 20160818

REACTIONS (1)
  - Hypernatraemia [Recovered/Resolved]

NARRATIVE: CASE EVENT DATE: 20160817
